FAERS Safety Report 21219702 (Version 6)
Quarter: 2023Q2

REPORT INFORMATION
  Report Type: Spontaneous
  Country: US (occurrence: US)
  Receive Date: 20220817
  Receipt Date: 20230622
  Transmission Date: 20230722
  Serious: Yes (Hospitalization, Other)
  Sender: FDA-Public Use
  Company Number: US-PFIZER INC-PV202200043956

PATIENT
  Age: 68 Year
  Sex: Female
  Weight: 50.8 kg

DRUGS (2)
  1. LORBRENA [Suspect]
     Active Substance: LORLATINIB
     Indication: Lung neoplasm malignant
     Dosage: 75 MG, DAILY (3 TABLETS)
     Route: 048
     Dates: start: 202207
  2. LORBRENA [Suspect]
     Active Substance: LORLATINIB
     Dosage: 25 MG

REACTIONS (3)
  - Disorientation [Unknown]
  - Renal impairment [Unknown]
  - Blood cholesterol increased [Unknown]
